FAERS Safety Report 7242135-4 (Version None)
Quarter: 2011Q1

REPORT INFORMATION
  Report Type: 
  Country: None (occurrence: None)
  Receive Date: 20110124
  Receipt Date: 20110119
  Transmission Date: 20110831
  Serious: Yes (Other)
  Sender: FDA-Public Use
  Company Number: GB-ABBOTT-11P-167-0699713-00

PATIENT
  Age: 61 Year
  Sex: Female

DRUGS (4)
  1. EFFEXOR XR [Concomitant]
     Indication: PRODUCT USED FOR UNKNOWN INDICATION
     Dates: start: 20101217
  2. PROCYCLIDINE [Concomitant]
     Indication: PRODUCT USED FOR UNKNOWN INDICATION
     Dates: start: 20100601
  3. RISPERIDONE [Concomitant]
     Indication: PRODUCT USED FOR UNKNOWN INDICATION
     Dates: start: 20010801
  4. DEPAKOTE [Suspect]
     Indication: SCHIZOAFFECTIVE DISORDER
     Route: 048
     Dates: start: 20080201, end: 20101210

REACTIONS (3)
  - CONFUSIONAL STATE [None]
  - ENCEPHALOPATHY [None]
  - MOBILITY DECREASED [None]
